FAERS Safety Report 4462050-9 (Version None)
Quarter: 2004Q3

REPORT INFORMATION
  Report Type: 
  Country: None (occurrence: None)
  Receive Date: 20040924
  Receipt Date: 20040913
  Transmission Date: 20050211
  Serious: Yes (Hospitalization)
  Sender: FDA-Public Use
  Company Number: 2004GB02205

PATIENT
  Age: 54 Year
  Sex: Female

DRUGS (3)
  1. SEROQUEL [Suspect]
     Indication: BIPOLAR DISORDER
     Dosage: 200 MG BID; PO
     Route: 048
     Dates: start: 20040801, end: 20040901
  2. SEROQUEL [Suspect]
     Indication: BIPOLAR DISORDER
     Dosage: 100 MG BID; PO
     Route: 048
     Dates: start: 20040801
  3. DEPAKOTE [Concomitant]

REACTIONS (4)
  - CYANOSIS [None]
  - DRUG TOXICITY [None]
  - MUSCULAR WEAKNESS [None]
  - PALLOR [None]
